FAERS Safety Report 15843045 (Version 1)
Quarter: 2018Q4

REPORT INFORMATION
  Report Type: Spontaneous
  Country: US (occurrence: US)
  Receive Date: 20181224
  Receipt Date: 20181224
  Transmission Date: 20190205
  Serious: No
  Sender: FDA-Public Use
  Company Number: None

PATIENT
  Age: 41 Year
  Sex: Male

DRUGS (4)
  1. HEMOFIL [Concomitant]
     Active Substance: ANTIHEMOPHILIC FACTOR HUMAN
  2. TENOFOVIR DF TAB [Suspect]
     Active Substance: TENOFOVIR DISOPROXIL FUMARATE
     Route: 048
     Dates: start: 20181120, end: 20181224
  3. ZIDOVUDINE. [Concomitant]
     Active Substance: ZIDOVUDINE
  4. ISENTRESS [Concomitant]
     Active Substance: RALTEGRAVIR POTASSIUM

REACTIONS (2)
  - Product quality issue [None]
  - Alopecia [None]

NARRATIVE: CASE EVENT DATE: 20181224
